FAERS Safety Report 24231005 (Version 2)
Quarter: 2024Q3

REPORT INFORMATION
  Report Type: Spontaneous
  Country: MX (occurrence: MX)
  Receive Date: 20240821
  Receipt Date: 20240828
  Transmission Date: 20241016
  Serious: Yes (Hospitalization, Other)
  Sender: RANBAXY
  Company Number: MX-SUN PHARMACEUTICAL INDUSTRIES LTD-2024R1-463459

PATIENT
  Sex: Male

DRUGS (2)
  1. PREDNISONE [Suspect]
     Active Substance: PREDNISONE
     Indication: Polychondritis
     Dosage: UNK
     Route: 065
     Dates: start: 202008
  2. AZATHIOPRINE [Suspect]
     Active Substance: AZATHIOPRINE
     Indication: Polychondritis
     Dosage: UNK
     Route: 065
     Dates: start: 202008

REACTIONS (12)
  - Arthritis [Unknown]
  - Chest pain [Unknown]
  - Costochondritis [Unknown]
  - Chondritis [Unknown]
  - Oxygen saturation abnormal [Unknown]
  - Pathergy reaction [Unknown]
  - Pneumonia [Unknown]
  - Pain in extremity [Unknown]
  - Testicular pain [Unknown]
  - Tinnitus [Unknown]
  - Tachycardia [Unknown]
  - Vertigo [Unknown]

NARRATIVE: CASE EVENT DATE: 20210101
